FAERS Safety Report 5667574-4 (Version None)
Quarter: 2008Q1

REPORT INFORMATION
  Report Type: 
  Country: None (occurrence: None)
  Receive Date: 20080315
  Receipt Date: 20080128
  Transmission Date: 20080703
  Serious: No
  Sender: FDA-Public Use
  Company Number: US-ABBOTT-08P-163-0435432-00

PATIENT
  Sex: Male
  Weight: 81.72 kg

DRUGS (4)
  1. HUMIRA [Suspect]
     Indication: ARTHRITIS REACTIVE
     Route: 058
     Dates: start: 20080101
  2. HUMIRA [Suspect]
     Route: 058
     Dates: start: 20071201, end: 20080101
  3. METHOTREXATE [Concomitant]
     Indication: ARTHRITIS REACTIVE
     Route: 050
     Dates: start: 20060501
  4. CELECOXIB [Concomitant]
     Indication: ARTHRITIS REACTIVE
     Route: 048
     Dates: start: 20060801

REACTIONS (2)
  - ARTHRALGIA [None]
  - ARTHRITIS [None]
